FAERS Safety Report 13151702 (Version 1)
Quarter: 2017Q1

REPORT INFORMATION
  Report Type: Spontaneous
  Country: US (occurrence: US)
  Receive Date: 20170125
  Receipt Date: 20170125
  Transmission Date: 20170428
  Serious: Yes (Disabling, Other)
  Sender: FDA-Public Use
  Company Number: US-BECTON DICKINSON-2017BDN00006

PATIENT
  Age: 86 Year
  Sex: Female

DRUGS (2)
  1. CHLORHEXIDINE [Suspect]
     Active Substance: CHLORHEXIDINE
     Indication: INFECTION PROPHYLAXIS
     Dosage: UNK
     Dates: start: 20160916, end: 20160916
  2. SUPPLEMENTAL OXYGEN [Suspect]
     Active Substance: UNSPECIFIED INGREDIENT
     Dosage: UNK
     Dates: start: 20160916, end: 20160916

REACTIONS (10)
  - Fear [Not Recovered/Not Resolved]
  - Medication error [Recovered/Resolved]
  - Activities of daily living impaired [Not Recovered/Not Resolved]
  - Thermal burn [Not Recovered/Not Resolved]
  - Scar [Not Recovered/Not Resolved]
  - Headache [Not Recovered/Not Resolved]
  - Anxiety [Not Recovered/Not Resolved]
  - Pain [Not Recovered/Not Resolved]
  - Visual acuity reduced [Not Recovered/Not Resolved]
  - Adjustment disorder with depressed mood [Not Recovered/Not Resolved]

NARRATIVE: CASE EVENT DATE: 20160916
